FAERS Safety Report 10252115 (Version 2)
Quarter: 2014Q2

REPORT INFORMATION
  Report Type: Report from Study
  Country: US (occurrence: US)
  Receive Date: 20140623
  Receipt Date: 20140623
  Transmission Date: 20141212
  Serious: Yes (Hospitalization)
  Sender: FDA-Public Use
  Company Number: US-JNJFOC-20131204770

PATIENT
  Age: 66 Year
  Sex: Female
  Weight: 45.36 kg

DRUGS (3)
  1. REMICADE [Suspect]
     Indication: CROHN^S DISEASE
     Route: 042
     Dates: start: 200502
  2. SULFASALAZINE [Concomitant]
     Indication: CROHN^S DISEASE
     Dosage: YEARS AGO
     Route: 048
  3. IMURAN [Concomitant]
     Indication: CROHN^S DISEASE
     Route: 048
     Dates: start: 2005

REACTIONS (3)
  - Small intestinal obstruction [Not Recovered/Not Resolved]
  - Surgery [Unknown]
  - Adverse event [Unknown]
